FAERS Safety Report 10172673 (Version 1)
Quarter: 2014Q2

REPORT INFORMATION
  Report Type: Spontaneous
  Country: ES (occurrence: ES)
  Receive Date: 20140515
  Receipt Date: 20140515
  Transmission Date: 20141212
  Serious: Yes (Other)
  Sender: FDA-Public Use
  Company Number: ES-BRISTOL-MYERS SQUIBB COMPANY-20716676

PATIENT
  Age: 73 Year
  Sex: Male

DRUGS (2)
  1. DASATINIB [Suspect]
     Indication: CHRONIC MYELOID LEUKAEMIA
  2. CLEXANE [Suspect]

REACTIONS (6)
  - Upper gastrointestinal haemorrhage [Unknown]
  - Oesophagitis [Unknown]
  - Urethritis [Unknown]
  - Large intestine polyp [Unknown]
  - Pleural effusion [Unknown]
  - Anaemia [Unknown]
